FAERS Safety Report 7046944-6 (Version None)
Quarter: 2010Q4

REPORT INFORMATION
  Report Type: 
  Country: None (occurrence: None)
  Receive Date: 20101015
  Receipt Date: 20101011
  Transmission Date: 20110411
  Serious: Yes (Hospitalization)
  Sender: FDA-Public Use
  Company Number: DE-BRISTOL-MYERS SQUIBB COMPANY-15061112

PATIENT
  Age: 64 Year
  Sex: Male
  Weight: 109 kg

DRUGS (3)
  1. CETUXIMAB [Suspect]
     Indication: GASTROOESOPHAGEAL CANCER
     Dosage: STRENGTH=5MG/ML PERMANENT DISCONTINUED ON 29MAR10.
     Route: 042
     Dates: start: 20100329, end: 20100329
  2. CISPLATIN [Suspect]
     Indication: GASTROOESOPHAGEAL CANCER
     Dosage: MOST RECENT INF:29-MAR-2010;FREQUENCY=80 MG/M2,ON DAY 1 OF CYCLE PERMANENT DISCONTINUED ON 29MAR10
     Route: 042
     Dates: start: 20100329, end: 20100329
  3. XELODA [Suspect]
     Indication: GASTROOESOPHAGEAL CANCER
     Dosage: DF=TABS,1000MG/M2 ON DAY 1-15 RECENT INFUSION ON 6APR10 PERMANENT DISCONTINUED ON 6APR10
     Route: 048
     Dates: start: 20100329, end: 20100406

REACTIONS (4)
  - BLOOD POTASSIUM DECREASED [None]
  - DIZZINESS [None]
  - ELECTROCARDIOGRAM CHANGE [None]
  - RENAL FAILURE ACUTE [None]
